FAERS Safety Report 10099453 (Version 3)
Quarter: 2014Q2

REPORT INFORMATION
  Report Type: Spontaneous
  Country: US (occurrence: US)
  Receive Date: 20140423
  Receipt Date: 20140515
  Transmission Date: 20141212
  Serious: No
  Sender: FDA-Public Use
  Company Number: US-PFIZER INC-2014109312

PATIENT
  Age: 58 Year
  Sex: Female
  Weight: 68.03 kg

DRUGS (6)
  1. SUTENT [Suspect]
     Indication: NEOPLASM MALIGNANT
     Dosage: UNK
     Dates: end: 20140512
  2. AMLODIPINE [Concomitant]
     Dosage: UNK
  3. DIOVAN [Concomitant]
     Dosage: UNK
  4. LISINOPRIL [Concomitant]
     Dosage: UNK
  5. LANTUS [Concomitant]
     Dosage: UNK
  6. NOVOLOG [Concomitant]
     Dosage: UNK

REACTIONS (3)
  - Nausea [Recovered/Resolved]
  - Disease progression [Unknown]
  - Neoplasm malignant [Unknown]
